FAERS Safety Report 8927474 (Version 1)
Quarter: 2012Q4

REPORT INFORMATION
  Report Type: 
  Country: GB (occurrence: GB)
  Receive Date: 20121127
  Receipt Date: 20121127
  Transmission Date: 20130627
  Serious: Yes (Disabling)
  Sender: FDA-Public Use
  Company Number: GB-WATSON-2012-19870

PATIENT
  Age: 48 Year
  Sex: Male

DRUGS (10)
  1. AZATHIOPRINE (UNKNOWN) [Suspect]
     Indication: PEMPHIGUS
     Dosage: 75 mg, bid, 25mg tablets plus 50mg tablet
     Route: 048
     Dates: start: 20120607
  2. LANSOPRAZOLE (UNKNOWN) [Suspect]
     Indication: PROPHYLAXIS AGAINST GASTROINTESTINAL ULCER
     Dosage: 15 mg, daily
     Route: 048
     Dates: start: 20120528
  3. PREDNISOLONE (UNKNOWN) [Suspect]
     Indication: PEMPHIGUS
     Dosage: 10 mg, bid
     Route: 048
     Dates: start: 20120518
  4. PREDNISOLONE (UNKNOWN) [Suspect]
     Indication: PEMPHIGUS
     Dosage: 40 mg, daily
     Route: 048
     Dates: start: 20120518
  5. ADCAL D3 [Suspect]
     Indication: OSTEOPOROSIS PROPHYLAXIS
     Dosage: 1 DF, bid
     Route: 048
     Dates: start: 20120414
  6. ALENDRONATE SODIUM- (UNKNOWN) [Suspect]
     Indication: OSTEOPOROSIS PROPHYLAXIS
     Dosage: 70 mg, daily
     Route: 048
     Dates: start: 20120528
  7. CORSODYL [Concomitant]
     Indication: PEMPHIGUS
     Dosage: 10 ml, bid
     Route: 048
     Dates: start: 20120518, end: 20120601
  8. BETNOVATE-C [Concomitant]
     Indication: PRODUCT USED FOR UNKNOWN INDICATION
     Dosage: As directed, UNK
     Route: 061
     Dates: start: 20120711
  9. DERMOVATE [Concomitant]
     Indication: PRODUCT USED FOR UNKNOWN INDICATION
     Dosage: Apply twice a day,UNK
     Route: 061
     Dates: start: 20120711
  10. DERMOL                             /00337102/ [Concomitant]
     Indication: PRODUCT USED FOR UNKNOWN INDICATION
     Dosage: Use as a soap substitute,UNK
     Route: 061
     Dates: start: 20120614

REACTIONS (3)
  - Temporomandibular joint syndrome [Unknown]
  - Tremor [Unknown]
  - Trismus [Unknown]
